FAERS Safety Report 7164235-X (Version None)
Quarter: 2010Q4

REPORT INFORMATION
  Report Type: 
  Country: None (occurrence: None)
  Receive Date: 20101215
  Receipt Date: 20101210
  Transmission Date: 20110411
  Serious: Yes (Other)
  Sender: FDA-Public Use
  Company Number: IT-SANOFI-AVENTIS-2010SA074580

PATIENT
  Age: 62 Year
  Sex: Male

DRUGS (3)
  1. ELOXATIN [Suspect]
     Route: 041
     Dates: start: 20080522, end: 20080522
  2. FLUOROURACIL [Concomitant]
     Route: 041
     Dates: start: 20080522, end: 20080524
  3. PLASIL [Concomitant]
     Route: 042

REACTIONS (1)
  - ANGINA PECTORIS [None]
